FAERS Safety Report 6198736-8 (Version None)
Quarter: 2009Q2

REPORT INFORMATION
  Report Type: 
  Country: None (occurrence: None)
  Receive Date: 20090521
  Receipt Date: 20090507
  Transmission Date: 20091009
  Serious: Yes (Hospitalization)
  Sender: FDA-Public Use
  Company Number: FR-GENENTECH-282814

PATIENT
  Sex: Male

DRUGS (5)
  1. BEVACIZUMAB [Suspect]
     Indication: COLORECTAL CANCER METASTATIC
     Dosage: 375 MG, UNK
     Route: 042
     Dates: start: 20081113, end: 20090327
  2. FLUOROURACIL [Suspect]
     Indication: COLON CANCER
     Dosage: 3600 MG, UNK
     Route: 042
     Dates: start: 20081113, end: 20090327
  3. OXALIPLATIN [Suspect]
     Indication: COLON CANCER
     Dosage: 145 MG, UNK
     Route: 065
     Dates: start: 20090220, end: 20090327
  4. CARDENSIEL [Suspect]
     Indication: HYPERTENSION
     Dosage: 4 MG, UNK
     Route: 048
  5. KARDEGIC [Suspect]
     Indication: CORONARY ARTERY DISEASE
     Dosage: 75 MG, UNK
     Route: 065

REACTIONS (2)
  - DEHYDRATION [None]
  - RENAL FAILURE [None]
